FAERS Safety Report 5982127-6 (Version None)
Quarter: 2008Q4

REPORT INFORMATION
  Report Type: 
  Country: None (occurrence: None)
  Receive Date: 20081202
  Receipt Date: 20081119
  Transmission Date: 20090506
  Serious: Yes (Other)
  Sender: FDA-Public Use
  Company Number: 2008SP023726

PATIENT
  Sex: Male

DRUGS (3)
  1. TEMODAL [Suspect]
     Indication: OLIGODENDROGLIOMA
     Dosage: PO
     Route: 048
     Dates: start: 20080701
  2. TEMODAL [Suspect]
     Indication: OLIGODENDROGLIOMA
     Dosage: PO
     Route: 048
     Dates: start: 20080901
  3. KEPPRA [Suspect]
     Indication: DRUG USE FOR UNKNOWN INDICATION

REACTIONS (1)
  - RENAL FAILURE [None]
